FAERS Safety Report 7620385-2 (Version None)
Quarter: 2011Q3

REPORT INFORMATION
  Report Type: 
  Country: None (occurrence: None)
  Receive Date: 20110718
  Receipt Date: 20110718
  Transmission Date: 20111222
  Serious: Yes (Disabling)
  Sender: FDA-Public Use
  Company Number: None

PATIENT
  Age: 85 Year
  Sex: Female
  Weight: 40.823 kg

DRUGS (1)
  1. RIFAXIMIN [Suspect]
     Indication: DIARRHOEA
     Dosage: 550
     Route: 048

REACTIONS (1)
  - ORAL CANDIDIASIS [None]
